FAERS Safety Report 7944868-0 (Version None)
Quarter: 2011Q4

REPORT INFORMATION
  Report Type: 
  Country: None (occurrence: None)
  Receive Date: 20111129
  Receipt Date: 20110713
  Transmission Date: 20120403
  Serious: No
  Sender: FDA-Public Use
  Company Number: US-MYLANLABS-2011S1012435

PATIENT
  Age: 53 Year
  Sex: Male

DRUGS (3)
  1. AMLODIPINE BESYLATE [Suspect]
     Indication: BLOOD PRESSURE INCREASED
     Dates: start: 20100101, end: 20110101
  2. ASCORBIC ACID [Concomitant]
  3. ASPIRIN [Concomitant]

REACTIONS (3)
  - FEELING OF DESPAIR [None]
  - SOMNOLENCE [None]
  - FEELING ABNORMAL [None]
